FAERS Safety Report 21176291 (Version 3)
Quarter: 2022Q4

REPORT INFORMATION
  Report Type: Other
  Country: FR (occurrence: None)
  Receive Date: 20220805
  Receipt Date: 20221004
  Transmission Date: 20230112
  Serious: Yes (Other)
  Sender: FDA-Public Use
  Company Number: FR-ROCHE-3111079

PATIENT
  Age: 75 Year
  Sex: Male
  Weight: 55 kg

DRUGS (33)
  1. ATEZOLIZUMAB [Suspect]
     Active Substance: ATEZOLIZUMAB
     Indication: Lung cancer metastatic
     Dosage: DOSE LAST STUDY DRUG ADMIN PRIOR AE/SAE WAS 1680 MG?START DATE AND END DATE OF MOST RECENT DOSE OF S
     Route: 041
     Dates: start: 20190823
  2. AMILORIDE HYDROCHLORIDE\HYDROCHLOROTHIAZIDE [Concomitant]
     Active Substance: AMILORIDE HYDROCHLORIDE\HYDROCHLOROTHIAZIDE
     Dates: end: 20220528
  3. SPIRIVA [Concomitant]
     Active Substance: TIOTROPIUM BROMIDE MONOHYDRATE
  4. SYMBICORT [Concomitant]
     Active Substance: BUDESONIDE\FORMOTEROL FUMARATE DIHYDRATE
  5. KARDEGIC [Concomitant]
     Active Substance: ASPIRIN DL-LYSINE
  6. INNOHEP [Concomitant]
     Active Substance: TINZAPARIN SODIUM
     Dates: start: 20220105, end: 20220529
  7. RBC TRANSFUSION [Concomitant]
     Dates: start: 20220505, end: 20220505
  8. RBC TRANSFUSION [Concomitant]
     Dates: start: 20220527, end: 20220527
  9. RBC TRANSFUSION [Concomitant]
     Dates: start: 20220529, end: 20220529
  10. RBC TRANSFUSION [Concomitant]
     Dates: start: 20220601, end: 20220601
  11. RBC TRANSFUSION [Concomitant]
     Dates: start: 20220604, end: 20220604
  12. RBC TRANSFUSION [Concomitant]
     Dates: start: 20220606, end: 20220606
  13. RBC TRANSFUSION [Concomitant]
     Dates: start: 20220525, end: 20220525
  14. RBC TRANSFUSION [Concomitant]
     Dates: start: 20220705, end: 20220705
  15. BISOPROLOL [Concomitant]
     Active Substance: BISOPROLOL
     Dates: start: 20220530
  16. VENOFER [Concomitant]
     Active Substance: IRON SUCROSE
     Dates: start: 20220530, end: 20220530
  17. VENOFER [Concomitant]
     Active Substance: IRON SUCROSE
     Dates: start: 20220602, end: 20220602
  18. VENOFER [Concomitant]
     Active Substance: IRON SUCROSE
     Dates: start: 20220606, end: 20220606
  19. VENOFER [Concomitant]
     Active Substance: IRON SUCROSE
     Dates: start: 20220609, end: 20220609
  20. VENOFER [Concomitant]
     Active Substance: IRON SUCROSE
     Dates: start: 20220613, end: 20220613
  21. VENOFER [Concomitant]
     Active Substance: IRON SUCROSE
     Dates: start: 20220616, end: 20220616
  22. VENOFER [Concomitant]
     Active Substance: IRON SUCROSE
     Dates: start: 20220620, end: 20220620
  23. ENOXAPARIN SODIUM [Concomitant]
     Active Substance: ENOXAPARIN SODIUM
     Dates: start: 20220530, end: 20220601
  24. PACLITAXEL [Concomitant]
     Active Substance: PACLITAXEL
     Indication: Neoplasm malignant
  25. CARBOPLATIN [Concomitant]
     Active Substance: CARBOPLATIN
     Indication: Neoplasm malignant
  26. BRICANYL [Concomitant]
     Active Substance: TERBUTALINE SULFATE
     Dates: start: 20210629, end: 20220511
  27. ATROVENT [Concomitant]
     Active Substance: IPRATROPIUM BROMIDE
     Dates: start: 20210629, end: 20220511
  28. PANTOPRAZOLE [Concomitant]
     Active Substance: PANTOPRAZOLE
     Dates: start: 20211210, end: 20220601
  29. ACETAMINOPHEN [Concomitant]
     Active Substance: ACETAMINOPHEN
     Dates: start: 20211210
  30. POLYETHYLENE GLYCOLS [Concomitant]
     Active Substance: POLYETHYLENE GLYCOLS
     Dates: start: 20210301, end: 20220528
  31. POLYETHYLENE GLYCOLS [Concomitant]
     Active Substance: POLYETHYLENE GLYCOLS
     Dates: start: 20220611
  32. HYDROCHLOROTHIAZIDE [Concomitant]
     Active Substance: HYDROCHLOROTHIAZIDE
     Dates: start: 20220529, end: 20220715
  33. COVID-19 VACCINE [Concomitant]
     Dates: end: 20220511

REACTIONS (3)
  - Acute kidney injury [Recovered/Resolved]
  - Colitis ischaemic [Recovered/Resolved]
  - Hypotension [Recovered/Resolved]

NARRATIVE: CASE EVENT DATE: 20220528
